FAERS Safety Report 6481070-6 (Version None)
Quarter: 2009Q4

REPORT INFORMATION
  Report Type: 
  Country: None (occurrence: None)
  Receive Date: 20091208
  Receipt Date: 20091130
  Transmission Date: 20100525
  Serious: Yes (Other)
  Sender: FDA-Public Use
  Company Number: US-ABBOTT-09P-163-0611275-00

PATIENT
  Sex: Female
  Weight: 88.53 kg

DRUGS (1)
  1. NIASPAN [Suspect]
     Indication: LDL/HDL RATIO
     Route: 048
     Dates: start: 20091001, end: 20091130

REACTIONS (4)
  - ANEURYSM [None]
  - DIZZINESS [None]
  - HEADACHE [None]
  - INCORRECT DRUG ADMINISTRATION DURATION [None]
